FAERS Safety Report 6159462-4 (Version None)
Quarter: 2009Q2

REPORT INFORMATION
  Report Type: 
  Country: None (occurrence: None)
  Receive Date: 20090417
  Receipt Date: 20090405
  Transmission Date: 20091009
  Serious: Yes (Death)
  Sender: FDA-Public Use
  Company Number: US-BAUSCH-2009BL001595

PATIENT
  Age: 69 Year
  Sex: Female
  Weight: 104 kg

DRUGS (24)
  1. MINOXIDIL [Suspect]
     Indication: HYPERTENSION
     Route: 048
     Dates: start: 20090401, end: 20090401
  2. ALLOPURINOL [Concomitant]
     Route: 048
     Dates: start: 20070101, end: 20090101
  3. ASPIRIN [Concomitant]
     Route: 048
     Dates: start: 20070101, end: 20090101
  4. CLONIDINE [Concomitant]
     Route: 048
     Dates: start: 20070101, end: 20090101
  5. DOXERCALCIFEROL [Concomitant]
     Route: 048
     Dates: start: 20070101, end: 20090101
  6. FOLIC ACID [Concomitant]
     Route: 048
     Dates: start: 20070101, end: 20090101
  7. FUROSEMIDE [Concomitant]
     Route: 048
     Dates: start: 20070101, end: 20090101
  8. METOPROLOL - SLOW RELEASE [Concomitant]
     Route: 048
     Dates: start: 20070101, end: 20090101
  9. NIFEDIPINE [Concomitant]
     Route: 048
     Dates: start: 20070101, end: 20090101
  10. PANTOPRAZOLE SODIUM [Concomitant]
     Route: 048
     Dates: start: 20070101, end: 20090101
  11. PAROXETINE HCL [Concomitant]
     Route: 048
     Dates: start: 20070101, end: 20090101
  12. RISPERIDONE [Concomitant]
     Route: 048
     Dates: start: 20070101, end: 20090101
  13. SIMVASTATIN [Concomitant]
     Route: 048
     Dates: start: 20070101, end: 20090101
  14. VALSARTAN [Concomitant]
     Route: 048
     Dates: start: 20070101, end: 20090101
  15. MULTI-VITAMINS [Concomitant]
     Route: 048
     Dates: start: 20070101, end: 20090101
  16. ACETAMINOPHEN AND OXYCODONE HCL [Concomitant]
     Route: 048
     Dates: start: 20070101, end: 20090101
  17. NITRGLYCERIN TRANSDERMAL SYSTEM [Concomitant]
     Route: 062
     Dates: start: 20070101, end: 20090101
  18. EPOETIN ALFA [Concomitant]
     Dosage: DOSE UNIT:UNKNOWN
     Dates: start: 20070101, end: 20090101
  19. CLOPIDOGREL [Concomitant]
     Route: 048
     Dates: start: 20090101, end: 20090101
  20. CEFEPIME [Concomitant]
     Indication: WHITE BLOOD CELL COUNT INCREASED
     Route: 042
     Dates: start: 20090101, end: 20090101
  21. VANCOMYCIN HCL [Concomitant]
     Indication: WHITE BLOOD CELL COUNT INCREASED
     Route: 042
     Dates: start: 20090101, end: 20090101
  22. ENALAPRIL [Concomitant]
     Indication: HYPERTENSION
     Route: 048
     Dates: start: 20090101, end: 20090101
  23. ACETAMINOPHEN [Concomitant]
     Indication: PYREXIA
     Dates: start: 20090101, end: 20090101
  24. FOSINOPRIL SODIUM [Concomitant]
     Route: 048
     Dates: start: 20090101, end: 20090101

REACTIONS (3)
  - CARDIO-RESPIRATORY ARREST [None]
  - PLATELET COUNT DECREASED [None]
  - TOXIC EPIDERMAL NECROLYSIS [None]
